FAERS Safety Report 8520744 (Version 5)
Quarter: 2014Q2

REPORT INFORMATION
  Report Type: Spontaneous
  Country: US (occurrence: US)
  Receive Date: 20120418
  Receipt Date: 20140611
  Transmission Date: 20141212
  Serious: Yes (Other)
  Sender: FDA-Public Use
  Company Number: US-ASTRAZENECA-2011SE61142

PATIENT
  Age: 76 Year
  Sex: Female

DRUGS (4)
  1. NEXIUM [Suspect]
     Indication: OESOPHAGEAL DISORDER
     Route: 048
  2. CRESTOR [Suspect]
     Route: 048
  3. TOPROL XL [Suspect]
     Route: 048
  4. LIPITOR [Concomitant]

REACTIONS (10)
  - Cerebrovascular accident [Unknown]
  - Arthritis [Unknown]
  - Accident [Unknown]
  - Hypoacusis [Unknown]
  - Dementia [Unknown]
  - Mental disorder [Unknown]
  - Mental disorder [Unknown]
  - Oesophageal disorder [Unknown]
  - Memory impairment [Unknown]
  - Off label use [Unknown]
